FAERS Safety Report 5051717-X (Version None)
Quarter: 2006Q3

REPORT INFORMATION
  Report Type: 
  Country: None (occurrence: None)
  Receive Date: 20060712
  Receipt Date: 20060712
  Transmission Date: 20061208
  Serious: Yes (Other)
  Sender: FDA-Public Use
  Company Number: None

PATIENT
  Sex: Male
  Weight: 65.7716 kg

DRUGS (2)
  1. OXYCODONE 40 MG (PT GOT @ CVS PHARMACY 865-525-4533) RX#697779 [Suspect]
     Indication: PAIN
     Dosage: 40 MG Q8H PO
     Route: 048
     Dates: start: 20060630, end: 20060714
  2. OXYCODONE 40 MG (PT GOT @ CVS PHARMACY 865-525-4533) RX#697779 [Suspect]
     Indication: SURGERY
     Dosage: 40 MG Q8H PO
     Route: 048
     Dates: start: 20060630, end: 20060714

REACTIONS (5)
  - BLOOD PRESSURE INCREASED [None]
  - NAUSEA [None]
  - PALPITATIONS [None]
  - PRURITUS [None]
  - URINARY RETENTION [None]
